FAERS Safety Report 6564444-4 (Version None)
Quarter: 2010Q1

REPORT INFORMATION
  Report Type: 
  Country: None (occurrence: None)
  Receive Date: 20100201
  Receipt Date: 20100122
  Transmission Date: 20100710
  Serious: Yes (Hospitalization)
  Sender: FDA-Public Use
  Company Number: US-ASTRAZENECA-2010SE03021

PATIENT
  Age: 64 Year
  Sex: Female

DRUGS (6)
  1. NEXIUM [Suspect]
     Indication: GASTROOESOPHAGEAL REFLUX DISEASE
     Route: 048
  2. PLAVIX [Suspect]
     Route: 048
  3. DIABETES MED [Concomitant]
  4. DEPRESSION MED [Concomitant]
  5. HYPERTENSION MED [Concomitant]
  6. DYSLIPIDEMIA MED [Concomitant]

REACTIONS (1)
  - MYOCARDIAL INFARCTION [None]
